FAERS Safety Report 6297050-X (Version None)
Quarter: 2009Q3

REPORT INFORMATION
  Report Type: 
  Country: None (occurrence: None)
  Receive Date: 20090804
  Receipt Date: 20090731
  Transmission Date: 20100115
  Serious: Yes (Life-Threatening)
  Sender: FDA-Public Use
  Company Number: PT-GILEAD-2009-0023438

PATIENT
  Sex: Female
  Weight: 53 kg

DRUGS (5)
  1. TRUVADA [Suspect]
     Indication: HIV INFECTION
     Route: 048
     Dates: start: 20090703, end: 20090718
  2. TRUVADA [Suspect]
     Dates: start: 20090612, end: 20090702
  3. ATAZANAVIR SULFATE [Suspect]
     Indication: HIV INFECTION
     Dates: start: 20090703, end: 20090718
  4. RITONAVIR [Suspect]
     Indication: HIV INFECTION
     Route: 048
     Dates: start: 20090703, end: 20090718
  5. EFAVIRENZ [Suspect]
     Indication: HIV INFECTION
     Dates: start: 20090612, end: 20090702

REACTIONS (3)
  - HYPERSENSITIVITY [None]
  - RASH GENERALISED [None]
  - TOXIC SKIN ERUPTION [None]
